FAERS Safety Report 20393989 (Version 1)
Quarter: 2022Q1

REPORT INFORMATION
  Report Type: Spontaneous
  Country: DE (occurrence: DE)
  Receive Date: 20220129
  Receipt Date: 20220129
  Transmission Date: 20220423
  Serious: Yes (Hospitalization)
  Sender: FDA-Public Use
  Company Number: None

PATIENT
  Age: 57 Year
  Sex: Female
  Weight: 120 kg

DRUGS (13)
  1. ALLOPURINOL [Interacting]
     Active Substance: ALLOPURINOL
     Indication: Product used for unknown indication
     Dosage: 100MG, 1-0-0-0, TABLETS
     Route: 048
  2. RAMIPRIL [Interacting]
     Active Substance: RAMIPRIL
     Indication: Product used for unknown indication
     Dosage: 2.5 MG, 1-0-0-0, TABLETS
     Route: 048
  3. NOVORAPID [Interacting]
     Active Substance: INSULIN ASPART
     Indication: Product used for unknown indication
     Dosage: PENFILL 300 U. 100 U./ML, 300 U/3ML, 9-5-7-0, PRE-FILLED SYRINGES
     Route: 058
  4. INSULIN GLARGINE [Interacting]
     Active Substance: INSULIN GLARGINE
     Indication: Product used for unknown indication
     Dosage: 0-0-0-20, PRE-FILLED SYRINGES
     Route: 058
  5. TORSEMIDE [Interacting]
     Active Substance: TORSEMIDE
     Indication: Product used for unknown indication
     Dosage: 10MG, 2-1-0-0, TABLETS
     Route: 048
  6. ASPIRIN [Concomitant]
     Active Substance: ASPIRIN
     Dosage: 100MG, 0-1-0-0, TABLETS
     Route: 048
  7. FERRO-SANOL DUODENAL [Concomitant]
     Active Substance: FERROUS GLYCINE SULFATE
     Dosage: 50MG, 50 MG, 1-0-0-0, CAPSULES
     Route: 048
  8. FRAGMIN [Concomitant]
     Active Substance: DALTEPARIN SODIUM
     Dosage: 5000IU, 5000 IU/0.2ML, 0-0-1-0, PRE-FILLED SYRINGES
     Route: 058
  9. PANCRELIPASE [Concomitant]
     Active Substance: PANCRELIPASE
     Dosage: 25000U, 25000 IU, 3-3-3-0, CAPSULES
     Route: 048
  10. LEVOTHYROXINE SODIUM [Concomitant]
     Active Substance: LEVOTHYROXINE SODIUM
     Dosage: 25 MICROGRAMS, 25MCG, 1.5-0-0-0, TABLETS
     Route: 048
  11. METOPROLOL [Concomitant]
     Active Substance: METOPROLOL
     Dosage: 47.5 MG, 1-0-1-0,
     Route: 048
  12. PANTOPRAZOLE [Concomitant]
     Active Substance: PANTOPRAZOLE
     Dosage: 40 MG, 1-0-0-0, TABLETS
     Route: 048
  13. SIMVASTATIN [Concomitant]
     Active Substance: SIMVASTATIN
     Dosage: 40 MG, 0-0-1-0, TABLETS
     Route: 048

REACTIONS (5)
  - Product monitoring error [Unknown]
  - Fracture blisters [Unknown]
  - Labelled drug-drug interaction medication error [Unknown]
  - Pain [Unknown]
  - Pain in extremity [Unknown]

NARRATIVE: CASE EVENT DATE: 20210220
